FAERS Safety Report 4359843-5 (Version None)
Quarter: 2004Q2

REPORT INFORMATION
  Report Type: 
  Country: None (occurrence: None)
  Receive Date: 20040514
  Receipt Date: 20040505
  Transmission Date: 20050107
  Serious: Yes (Death, Hospitalization)
  Sender: FDA-Public Use
  Company Number: 2003116557

PATIENT
  Age: 83 Year
  Sex: Female
  Weight: 49.4421 kg

DRUGS (5)
  1. ATORVASTATIN (ATORVASTATIN) [Suspect]
     Indication: DEMENTIA ALZHEIMER'S TYPE
     Dosage: 80 MG DAILY, ORAL
     Route: 048
     Dates: start: 20030922, end: 20031105
  2. DONEPEZIL HCL [Concomitant]
  3. CYANOCOBALAMIN (CYANOCOBALAMIN) [Concomitant]
  4. HYDROCHLOROTHIAZIDE [Concomitant]
  5. MULTIVITAMINS AND IRON (MULTIVITAMINS AND IRON) [Concomitant]

REACTIONS (31)
  - ANOREXIA [None]
  - AORTIC ATHEROSCLEROSIS [None]
  - AORTIC VALVE INCOMPETENCE [None]
  - BILIARY DILATATION [None]
  - CARDIAC FAILURE CONGESTIVE [None]
  - CARDIOMEGALY [None]
  - CHOLELITHIASIS [None]
  - CORONARY ARTERY DISEASE [None]
  - DEHYDRATION [None]
  - DIARRHOEA [None]
  - DILATATION ATRIAL [None]
  - GAIT DISTURBANCE [None]
  - HEPATIC CYST [None]
  - HYDRONEPHROSIS [None]
  - INTESTINAL ISCHAEMIA [None]
  - MITRAL VALVE INCOMPETENCE [None]
  - MYOCARDIAL INFARCTION [None]
  - NEPHRITIS INTERSTITIAL [None]
  - PANCREATITIS [None]
  - PERNICIOUS ANAEMIA [None]
  - PLEURAL EFFUSION [None]
  - PULMONARY HYPERTENSION [None]
  - PULMONARY OEDEMA [None]
  - RENAL CYST [None]
  - RENAL FAILURE ACUTE [None]
  - RHABDOMYOLYSIS [None]
  - TREATMENT NONCOMPLIANCE [None]
  - TRICUSPID VALVE INCOMPETENCE [None]
  - URINARY TRACT INFECTION [None]
  - WEIGHT DECREASED [None]
  - WHITE BLOOD CELL COUNT INCREASED [None]
